FAERS Safety Report 4664655-9 (Version None)
Quarter: 2005Q2

REPORT INFORMATION
  Report Type: 
  Country: None (occurrence: None)
  Receive Date: 20050516
  Receipt Date: 20050504
  Transmission Date: 20051028
  Serious: Yes (Hospitalization, Other)
  Sender: FDA-Public Use
  Company Number: 2004242949TH

PATIENT
  Age: 49 Year
  Sex: Male
  Weight: 67 kg

DRUGS (5)
  1. BEXTRA [Suspect]
     Indication: PAIN IN EXTREMITY
     Dosage: 20 MG (20 MG, 1 IN 1 D), ORAL
     Route: 048
     Dates: start: 20041016, end: 20040101
  2. BEXTRA [Suspect]
     Indication: PLANTAR FASCIITIS
     Dosage: 20 MG (20 MG, 1 IN 1 D), ORAL
     Route: 048
     Dates: start: 20041016, end: 20040101
  3. NEURONTIN [Suspect]
     Indication: PAIN IN EXTREMITY
     Dosage: 300 MG (300 MG, 1 IN 1 D), ORAL
     Route: 048
     Dates: start: 20041016
  4. NEURONTIN [Suspect]
     Indication: PLANTAR FASCIITIS
     Dosage: 300 MG (300 MG, 1 IN 1 D), ORAL
     Route: 048
     Dates: start: 20041016
  5. COLCHICINE (COLCHICINE) [Concomitant]

REACTIONS (9)
  - BLOOD CHOLESTEROL INCREASED [None]
  - BLOOD GLUCOSE INCREASED [None]
  - BLOOD TRIGLYCERIDES INCREASED [None]
  - DRUG ERUPTION [None]
  - DRUG HYPERSENSITIVITY [None]
  - GOUTY ARTHRITIS [None]
  - LOW DENSITY LIPOPROTEIN INCREASED [None]
  - SKIN LESION [None]
  - STEVENS-JOHNSON SYNDROME [None]
